FAERS Safety Report 15385112 (Version 4)
Quarter: 2019Q2

REPORT INFORMATION
  Report Type: Spontaneous
  Country: US (occurrence: US)
  Receive Date: 20180914
  Receipt Date: 20190624
  Transmission Date: 20190711
  Serious: No
  Sender: FDA-Public Use
  Company Number: PHEH2018US038566

PATIENT
  Sex: Female

DRUGS (1)
  1. TYKERB [Suspect]
     Active Substance: LAPATINIB DITOSYLATE
     Indication: BREAST CANCER FEMALE
     Dosage: 1000 MG, QD
     Route: 048
     Dates: start: 20180816

REACTIONS (4)
  - Psoriasis [Not Recovered/Not Resolved]
  - Diarrhoea [Unknown]
  - Skin exfoliation [Unknown]
  - Dry skin [Unknown]
